FAERS Safety Report 26114103 (Version 1)
Quarter: 2025Q4

REPORT INFORMATION
  Report Type: Spontaneous
  Country: EU (occurrence: EU)
  Receive Date: 20251202
  Receipt Date: 20251202
  Transmission Date: 20260117
  Serious: Yes (Hospitalization, Other)
  Sender: BRISTOL-MYERS SQUIBB COMPANY
  Company Number: EU-BRISTOL-MYERS SQUIBB COMPANY-2025-142808

PATIENT
  Age: 80 Year
  Sex: Male
  Weight: 68.3 kg

DRUGS (15)
  1. VIDAZA [Suspect]
     Active Substance: AZACITIDINE
     Indication: Acute myeloid leukaemia
     Dosage: D1C1 (DAY1CYCLE1)
  2. VIDAZA [Suspect]
     Active Substance: AZACITIDINE
     Dosage: D1C2
  3. VENETOCLAX [Suspect]
     Active Substance: VENETOCLAX
     Indication: Acute myeloid leukaemia
     Dosage: D1C1 (DAY1CYCLE1)
  4. VENETOCLAX [Suspect]
     Active Substance: VENETOCLAX
     Dosage: D1C2
  5. GRANULOCYTE COLONY-STIMULATING FACTOR NOS [Suspect]
     Active Substance: GRANULOCYTE COLONY-STIMULATING FACTOR NOS
     Indication: Neutropenia
  6. ERYTHROPOIETIN [Concomitant]
     Active Substance: ERYTHROPOIETIN
     Indication: Product used for unknown indication
     Dosage: INJECTION/WEEK ON WEDNESDAY
     Route: 058
  7. FILGRASTIM [Concomitant]
     Active Substance: FILGRASTIM
     Indication: Product used for unknown indication
     Route: 058
  8. CREON [Concomitant]
     Active Substance: PANCRELIPASE AMYLASE\PANCRELIPASE LIPASE\PANCRELIPASE PROTEASE
     Indication: Product used for unknown indication
     Dosage: 25000U
  9. MULTIENZYME [Concomitant]
     Indication: Product used for unknown indication
     Dosage: 1 CAPSULE IN THE MORNING, 1 CAPSULE AT NOON, 1 CAPSULE AT BEDTIME
  10. PANTOPRAZOLE [Concomitant]
     Active Substance: PANTOPRAZOLE
     Indication: Product used for unknown indication
     Dosage: 1 MIDDAY TABLET
  11. LERCANIDIPINE [Concomitant]
     Active Substance: LERCANIDIPINE
     Indication: Product used for unknown indication
     Dosage: : 1 TABLET IN THE MORNING
  12. METFORMIN [Concomitant]
     Active Substance: METFORMIN HYDROCHLORIDE
     Indication: Product used for unknown indication
     Dosage: 1 TABLET IN THE MORNING, 1 TABLET AT BEDTIME
  13. SODIUM BICARBONATE [Concomitant]
     Active Substance: SODIUM BICARBONATE
     Indication: Product used for unknown indication
     Dosage: ONE MOUTHWASH/8 HRS
  14. ALGELDRATE\SODIUM ALGINATE [Concomitant]
     Active Substance: ALGELDRATE\SODIUM ALGINATE
     Indication: Abdominal pain upper
     Dosage: 1 SACHET PER DOSE
  15. POSACONAZOLE [Concomitant]
     Active Substance: POSACONAZOLE
     Indication: Product used for unknown indication
     Dosage: 300 MG MORNING AND EVENING ON THE FIRST DAY THEN 300 MG IN THE MORNING

REACTIONS (30)
  - Cytopenia [Unknown]
  - Bone marrow failure [Unknown]
  - Treatment failure [Unknown]
  - Gastrointestinal haemorrhage [Unknown]
  - Febrile neutropenia [Unknown]
  - Asthenia [Unknown]
  - Decreased appetite [Unknown]
  - Appendicitis [Unknown]
  - Intestinal sepsis [Unknown]
  - Tonsillitis [Unknown]
  - Hiatus hernia [Unknown]
  - Gastritis [Unknown]
  - Neutrophilic dermatosis [Unknown]
  - Oral candidiasis [Recovered/Resolved]
  - Oesophagitis ulcerative [Recovered/Resolved]
  - Nausea [Unknown]
  - Vomiting [Unknown]
  - Injection site haematoma [Unknown]
  - Oedema peripheral [Unknown]
  - Hyphaema [Recovered/Resolved]
  - Oesophageal candidiasis [Recovered/Resolved]
  - Hyponatraemia [Recovered/Resolved]
  - Taste disorder [Unknown]
  - Lymphadenopathy [Unknown]
  - Hypokalaemia [Unknown]
  - Hypomagnesaemia [Unknown]
  - Hypoalbuminaemia [Unknown]
  - Weight decreased [Unknown]
  - Inflammation [Recovering/Resolving]
  - Malnutrition [Unknown]

NARRATIVE: CASE EVENT DATE: 20250301
